FAERS Safety Report 5522132-7 (Version None)
Quarter: 2007Q4

REPORT INFORMATION
  Report Type: 
  Country: None (occurrence: None)
  Receive Date: 20071120
  Receipt Date: 20071115
  Transmission Date: 20080405
  Serious: Yes (Hospitalization, Other)
  Sender: FDA-Public Use
  Company Number: US-MERCK-0603USA04129

PATIENT
  Age: 53 Year
  Sex: Female

DRUGS (9)
  1. FOSAMAX [Suspect]
     Indication: OSTEOPOROSIS
     Route: 048
     Dates: start: 20010406
  2. FOSAMAX [Suspect]
     Route: 048
     Dates: end: 20060201
  3. FOSAMAX [Suspect]
     Route: 048
  4. ZOCOR [Concomitant]
     Indication: BLOOD CHOLESTEROL INCREASED
     Route: 048
     Dates: start: 20020101
  5. PRILOSEC [Concomitant]
     Route: 065
     Dates: start: 19990101
  6. ESTRATEST [Concomitant]
     Route: 065
  7. PROZAC [Concomitant]
     Route: 065
  8. CARBIDOPA AND LEVODOPA [Concomitant]
     Route: 065
  9. CARBIDOPA AND LEVODOPA [Concomitant]
     Route: 065

REACTIONS (19)
  - ANXIETY [None]
  - ARTHRITIS [None]
  - CARPAL TUNNEL SYNDROME [None]
  - CHRONIC SINUSITIS [None]
  - COLITIS [None]
  - GASTROOESOPHAGEAL REFLUX DISEASE [None]
  - INAPPROPRIATE SCHEDULE OF DRUG ADMINISTRATION [None]
  - LOWER GASTROINTESTINAL HAEMORRHAGE [None]
  - LUNG INFILTRATION [None]
  - MYALGIA [None]
  - NECK PAIN [None]
  - OSTEONECROSIS [None]
  - OVERDOSE [None]
  - PHARYNGITIS [None]
  - PSEUDARTHROSIS [None]
  - RECTAL HAEMORRHAGE [None]
  - ROTATOR CUFF SYNDROME [None]
  - SPINAL DISORDER [None]
  - SPINAL OSTEOARTHRITIS [None]
